FAERS Safety Report 11743055 (Version 1)
Quarter: 2015Q4

REPORT INFORMATION
  Report Type: Spontaneous
  Country: US (occurrence: US)
  Receive Date: 20151116
  Receipt Date: 20151116
  Transmission Date: 20160304
  Serious: No
  Sender: FDA-Public Use
  Company Number: US-ACTELION PHARMACEUTICALS US, INC.-A-US2015-114078

PATIENT
  Age: 18 Month
  Sex: Female

DRUGS (1)
  1. TRACLEER [Suspect]
     Active Substance: BOSENTAN
     Indication: ACCIDENTAL EXPOSURE TO PRODUCT BY CHILD
     Dosage: 62.5 MG, UNK
     Route: 048
     Dates: start: 20150224, end: 20150224

REACTIONS (2)
  - No adverse event [Unknown]
  - Accidental exposure to product by child [Unknown]
